FAERS Safety Report 9822391 (Version 1)
Quarter: 2014Q1

REPORT INFORMATION
  Report Type: Report from Study
  Country: US (occurrence: US)
  Receive Date: 20140116
  Receipt Date: 20140116
  Transmission Date: 20141002
  Serious: Yes (Hospitalization)
  Sender: FDA-Public Use
  Company Number: US-JNJFOC-20140104924

PATIENT
  Age: 63 Year
  Sex: Female
  Weight: 68.04 kg

DRUGS (10)
  1. SIMPONI [Suspect]
     Indication: SYSTEMIC LUPUS ERYTHEMATOSUS
     Route: 058
     Dates: start: 201212
  2. SIMPONI [Suspect]
     Indication: PSORIASIS
     Route: 058
     Dates: start: 201212
  3. SIMPONI [Suspect]
     Indication: PSORIATIC ARTHROPATHY
     Route: 058
     Dates: start: 201212
  4. SERTRALINE [Concomitant]
     Indication: DEPRESSION
     Route: 048
  5. FOLIC ACID [Concomitant]
     Route: 048
  6. ATENOLOL [Concomitant]
     Indication: CARDIAC DISORDER
     Route: 048
  7. VERAPAMIL [Concomitant]
     Indication: CARDIAC DISORDER
     Route: 048
  8. AMBIEN [Concomitant]
     Indication: SLEEP DISORDER
     Route: 065
  9. BUTRANS [Concomitant]
     Indication: PAIN
     Route: 065
  10. VITAMIN D [Concomitant]
     Route: 048

REACTIONS (5)
  - Sepsis [Unknown]
  - Urinary tract infection [Unknown]
  - White blood cell count increased [Not Recovered/Not Resolved]
  - Drug dose omission [Not Recovered/Not Resolved]
  - Off label use [Not Recovered/Not Resolved]
